FAERS Safety Report 5958973-1 (Version None)
Quarter: 2008Q4

REPORT INFORMATION
  Report Type: 
  Country: None (occurrence: None)
  Receive Date: 20081117
  Receipt Date: 20081029
  Transmission Date: 20090506
  Serious: Yes (Hospitalization)
  Sender: FDA-Public Use
  Company Number: 20535

PATIENT
  Age: 15 Year
  Sex: Male

DRUGS (3)
  1. METHOTREXATE [Suspect]
     Indication: ARTHRITIS
     Dosage: 7.5 MG WEEKLY SC
     Route: 058
     Dates: start: 19980818, end: 20070701
  2. LACTULOSE [Concomitant]
  3. PIROXICAM [Concomitant]

REACTIONS (3)
  - EAR INFECTION [None]
  - TONSILLITIS [None]
  - TYMPANIC MEMBRANE PERFORATION [None]
